FAERS Safety Report 8939578 (Version 2)
Quarter: 2012Q4

REPORT INFORMATION
  Report Type: 
  Country: US (occurrence: US)
  Receive Date: 20121203
  Receipt Date: 20121221
  Transmission Date: 20130627
  Serious: No
  Sender: FDA-Public Use
  Company Number: US-BIOGENIDEC-2012BI055936

PATIENT
  Age: 29 Year
  Sex: Female

DRUGS (2)
  1. TYSABRI [Suspect]
     Indication: MULTIPLE SCLEROSIS
     Route: 042
     Dates: start: 20120521, end: 20121102
  2. AVONEX [Concomitant]
     Indication: MULTIPLE SCLEROSIS
     Route: 030
     Dates: start: 20110701

REACTIONS (5)
  - Sensation of foreign body [Recovered/Resolved]
  - Laryngitis [Recovered/Resolved]
  - Tonsillitis [Recovered/Resolved]
  - Pharyngitis streptococcal [Recovered/Resolved]
  - Multiple sclerosis relapse [Recovered/Resolved]
